FAERS Safety Report 10785090 (Version 1)
Quarter: 2015Q1

REPORT INFORMATION
  Report Type: Spontaneous
  Country: US (occurrence: None)
  Receive Date: 20150209
  Receipt Date: 20150209
  Transmission Date: 20150721
  Serious: Yes (Life-Threatening, Other)
  Sender: FDA-Public Use
  Company Number: ADR-2015-00265

PATIENT
  Sex: Female

DRUGS (1)
  1. BACLOFEN INTRATHECAL [Suspect]
     Active Substance: BACLOFEN
     Indication: MUSCLE SPASTICITY

REACTIONS (9)
  - Procedural complication [None]
  - Withdrawal syndrome [None]
  - Catheter site extravasation [None]
  - Mental status changes [None]
  - Staphylococcal infection [None]
  - Coma [None]
  - Drug level decreased [None]
  - Screaming [None]
  - Implant site infection [None]
